FAERS Safety Report 11993061 (Version 1)
Quarter: 2016Q1

REPORT INFORMATION
  Report Type: Report from Study
  Country: US (occurrence: US)
  Receive Date: 20160203
  Receipt Date: 20160203
  Transmission Date: 20160526
  Serious: Yes (Hospitalization, Other)
  Sender: FDA-Public Use
  Company Number: US-ROCHE-1701555

PATIENT
  Age: 59 Year
  Sex: Female

DRUGS (4)
  1. ENTINOSTAT [Suspect]
     Active Substance: ENTINOSTAT
     Indication: HER-2 POSITIVE BREAST CANCER
     Route: 048
     Dates: start: 20140530
  2. LAPATINIB [Suspect]
     Active Substance: LAPATINIB
     Indication: HER-2 POSITIVE BREAST CANCER
     Route: 048
     Dates: start: 20140530
  3. TRASTUZUMAB [Suspect]
     Active Substance: TRASTUZUMAB
     Indication: HER-2 POSITIVE BREAST CANCER
     Dosage: OVER 90 MIN FOR INITIAL DOSE
     Route: 042
     Dates: start: 20140530
  4. TRASTUZUMAB [Suspect]
     Active Substance: TRASTUZUMAB
     Dosage: MAINTENANCE DOSE?OVER 30 TO 90 MIN
     Route: 042

REACTIONS (5)
  - Atrial fibrillation [Unknown]
  - Abdominal pain [Unknown]
  - Platelet count decreased [Not Recovered/Not Resolved]
  - Hypocalcaemia [Unknown]
  - Anaemia [Recovering/Resolving]

NARRATIVE: CASE EVENT DATE: 20140721
